FAERS Safety Report 22876245 (Version 3)
Quarter: 2024Q1

REPORT INFORMATION
  Report Type: Other
  Country: JP (occurrence: JP)
  Receive Date: 20230829
  Receipt Date: 20240322
  Transmission Date: 20240410
  Serious: Yes (Hospitalization)
  Sender: FDA-Public Use
  Company Number: JP-CHUGAI-2023030664AA

PATIENT
  Age: 57 Year
  Sex: Male
  Weight: 57 kg

DRUGS (14)
  1. POLIVY [Suspect]
     Active Substance: POLATUZUMAB VEDOTIN-PIIQ
     Indication: Diffuse large B-cell lymphoma
     Dosage: 102 MILLIGRAM, SINGLE
     Route: 041
     Dates: start: 20230706, end: 20230706
  2. POLIVY [Suspect]
     Active Substance: POLATUZUMAB VEDOTIN-PIIQ
     Dosage: 101 MILLIGRAM, SINGLE
     Route: 041
     Dates: start: 20230727, end: 20230727
  3. POLIVY [Suspect]
     Active Substance: POLATUZUMAB VEDOTIN-PIIQ
     Dosage: 106 MILLIGRAM
     Route: 041
     Dates: start: 20230817
  4. RITUXIMAB [Concomitant]
     Active Substance: RITUXIMAB
     Indication: Diffuse large B-cell lymphoma
     Dosage: 650 MILLIGRAM, SINGLE
     Route: 041
     Dates: start: 20230710, end: 20230710
  5. RITUXIMAB [Concomitant]
     Active Substance: RITUXIMAB
     Dosage: 645 MILLIGRAM, SINGLE
     Route: 041
     Dates: start: 20230728, end: 20230728
  6. RITUXIMAB [Concomitant]
     Active Substance: RITUXIMAB
     Dosage: 660 MILLIGRAM
     Route: 041
     Dates: start: 20230818
  7. CYCLOPHOSPHAMIDE [Concomitant]
     Active Substance: CYCLOPHOSPHAMIDE
     Indication: Diffuse large B-cell lymphoma
     Dosage: 1300 MILLIGRAM, SINGLE
     Route: 041
     Dates: start: 20230706, end: 20230706
  8. CYCLOPHOSPHAMIDE [Concomitant]
     Active Substance: CYCLOPHOSPHAMIDE
     Dosage: 1290 MILLIGRAM, SINGLE
     Route: 041
     Dates: start: 20230727, end: 20230727
  9. CYCLOPHOSPHAMIDE [Concomitant]
     Active Substance: CYCLOPHOSPHAMIDE
     Dosage: 1315 MILLIGRAM
     Route: 041
     Dates: start: 20230817
  10. DOXORUBICIN HYDROCHLORIDE [Concomitant]
     Active Substance: DOXORUBICIN HYDROCHLORIDE
     Indication: Diffuse large B-cell lymphoma
     Dosage: 86 MILLIGRAM
     Route: 041
     Dates: start: 20230706, end: 20230727
  11. DOXORUBICIN HYDROCHLORIDE [Concomitant]
     Active Substance: DOXORUBICIN HYDROCHLORIDE
     Dosage: 88 MILLIGRAM
     Route: 041
     Dates: start: 20230817
  12. PREDNISOLONE [Concomitant]
     Active Substance: PREDNISOLONE
     Indication: Diffuse large B-cell lymphoma
     Dosage: 100 MILLIGRAM, QD
     Route: 048
     Dates: start: 20230706, end: 20230710
  13. PREDNISOLONE [Concomitant]
     Active Substance: PREDNISOLONE
     Dosage: 100 MILLIGRAM, QD
     Route: 048
     Dates: start: 20230727, end: 20230731
  14. PREDNISOLONE [Concomitant]
     Active Substance: PREDNISOLONE
     Dosage: 100 MILLIGRAM, QD
     Route: 048
     Dates: start: 20230817, end: 20230821

REACTIONS (1)
  - Aortic aneurysm [Recovered/Resolved]

NARRATIVE: CASE EVENT DATE: 20230822
